FAERS Safety Report 9513186 (Version 1)
Quarter: 2013Q3

REPORT INFORMATION
  Report Type: Spontaneous
  Country: FR (occurrence: FR)
  Receive Date: 20130910
  Receipt Date: 20130910
  Transmission Date: 20140515
  Serious: Yes (Hospitalization)
  Sender: FDA-Public Use
  Company Number: FR-PFIZER INC-2013254319

PATIENT
  Sex: Female
  Weight: 2.44 kg

DRUGS (11)
  1. XANAX [Suspect]
     Dosage: 0.50 MG, } 10 TABLETS DAILY
     Route: 064
  2. SERTRALINE [Suspect]
     Dosage: 50 MG, 1X/DAY
     Route: 064
     Dates: end: 20130627
  3. SERESTA [Suspect]
     Dosage: 60 MG, 1X/DAY
     Route: 064
  4. ZOPICLONE [Suspect]
     Dosage: 15 MG, 1X/DAY
     Route: 064
  5. ZOPICLONE [Suspect]
     Dosage: 7.5 MG, 1X/DAY
     Route: 064
     Dates: end: 20130627
  6. INEXIUM [Suspect]
     Dosage: UNK
     Route: 064
     Dates: end: 20130627
  7. LEVOTHYROX [Suspect]
     Dosage: UNK
     Route: 064
     Dates: end: 20130627
  8. TERCIAN [Concomitant]
     Dosage: 40 GTT, 1X/DAY
     Route: 064
  9. TERCIAN [Concomitant]
     Dosage: 15 GTT, 1X/DAY
     Route: 064
  10. CITALOPRAM [Concomitant]
     Route: 064
  11. PANTOPRAZOLE [Concomitant]
     Indication: GASTROOESOPHAGEAL REFLUX DISEASE

REACTIONS (5)
  - Maternal exposure during pregnancy [Recovering/Resolving]
  - Foetal malnutrition [Recovering/Resolving]
  - Hypoglycaemia neonatal [Recovered/Resolved]
  - Agitation neonatal [Recovered/Resolved]
  - Apnoea neonatal [Recovered/Resolved]
